FAERS Safety Report 9272022 (Version 1)
Quarter: 2013Q2

REPORT INFORMATION
  Report Type: Spontaneous
  Country: GB (occurrence: GB)
  Receive Date: 20130506
  Receipt Date: 20130506
  Transmission Date: 20140414
  Serious: Yes (Life-Threatening)
  Sender: FDA-Public Use
  Company Number: GB-TEVA-400458ISR

PATIENT
  Age: 72 Year
  Sex: Female

DRUGS (11)
  1. CLARITHROMYCIN [Suspect]
     Indication: PLEURAL EFFUSION
     Route: 048
     Dates: start: 20110607
  2. FENTANYL [Interacting]
     Indication: BONE PAIN
     Dosage: 87 MICROG/H 72 HOURLY
     Route: 062
  3. CANDESARTAN CILEXETIL [Concomitant]
     Route: 065
  4. DOXAZOSIN [Concomitant]
     Route: 065
  5. ZOPICLONE [Concomitant]
     Route: 065
  6. AMITRIPTYLINE [Concomitant]
     Route: 065
  7. SEVELAMER [Concomitant]
     Route: 065
  8. TAMOXIFEN [Concomitant]
     Route: 065
  9. DEXAMETHASONE [Concomitant]
     Route: 065
  10. PARACETAMOL [Concomitant]
     Dosage: WHEN NEEDED
     Route: 065
  11. IBUPROFEN [Concomitant]
     Dosage: WHEN NEEDED
     Route: 065

REACTIONS (2)
  - Respiratory arrest [Recovered/Resolved]
  - Drug interaction [Recovered/Resolved]
